APPROVED DRUG PRODUCT: CLOPIDOGREL BISULFATE
Active Ingredient: CLOPIDOGREL BISULFATE
Strength: EQ 75MG BASE
Dosage Form/Route: TABLET;ORAL
Application: A202266 | Product #001
Applicant: CHARTWELL RX SCIENCES LLC
Approved: Aug 14, 2012 | RLD: No | RS: No | Type: DISCN